FAERS Safety Report 8111918 (Version 8)
Quarter: 2013Q2

REPORT INFORMATION
  Report Type: Spontaneous
  Country: US (occurrence: US)
  Receive Date: 20110829
  Receipt Date: 20130425
  Transmission Date: 20140414
  Serious: Yes (Other)
  Sender: FDA-Public Use
  Company Number: US-ASTRAZENECA-2010SE30512

PATIENT
  Age: 58 Year
  Sex: Female

DRUGS (21)
  1. SEROQUEL XR [Suspect]
     Indication: BIPOLAR DISORDER
     Route: 048
  2. SEROQUEL XR [Suspect]
     Indication: MOOD SWINGS
     Route: 048
  3. SEROQUEL XR [Suspect]
     Indication: BIPOLAR DISORDER
     Route: 048
  4. SEROQUEL XR [Suspect]
     Indication: MOOD SWINGS
     Route: 048
  5. SEROQUEL XR [Suspect]
     Indication: BIPOLAR DISORDER
     Route: 048
     Dates: start: 20100612
  6. SEROQUEL XR [Suspect]
     Indication: MOOD SWINGS
     Route: 048
     Dates: start: 20100612
  7. SEROQUEL XR [Suspect]
     Indication: BIPOLAR DISORDER
     Route: 048
     Dates: start: 20100624
  8. SEROQUEL XR [Suspect]
     Indication: MOOD SWINGS
     Route: 048
     Dates: start: 20100624
  9. SEROQUEL XR [Suspect]
     Indication: BIPOLAR DISORDER
     Route: 048
  10. SEROQUEL XR [Suspect]
     Indication: MOOD SWINGS
     Route: 048
  11. SEROQUEL XR [Suspect]
     Indication: BIPOLAR DISORDER
     Route: 048
  12. SEROQUEL XR [Suspect]
     Indication: MOOD SWINGS
     Route: 048
  13. SEROQUEL XR [Suspect]
     Indication: BIPOLAR DISORDER
     Route: 048
  14. SEROQUEL XR [Suspect]
     Indication: MOOD SWINGS
     Route: 048
  15. SEROQUEL XR [Suspect]
     Indication: BIPOLAR DISORDER
     Dosage: CUTTING HER PILLS
     Route: 048
  16. SEROQUEL XR [Suspect]
     Indication: MOOD SWINGS
     Dosage: CUTTING HER PILLS
     Route: 048
  17. SEROQUEL XR [Suspect]
     Indication: BIPOLAR DISORDER
     Route: 048
  18. SEROQUEL XR [Suspect]
     Indication: MOOD SWINGS
     Route: 048
  19. LAMICTAL [Suspect]
     Route: 065
  20. XANEX [Concomitant]
     Indication: ANXIETY
  21. ADVIL [Concomitant]

REACTIONS (32)
  - Homicidal ideation [Unknown]
  - Hepatitis C [Unknown]
  - Suicidal ideation [Unknown]
  - Road traffic accident [Unknown]
  - Mental disorder [Unknown]
  - Aggression [Unknown]
  - Convulsion [Unknown]
  - Attention deficit/hyperactivity disorder [Unknown]
  - Liver disorder [Unknown]
  - Bipolar disorder [Unknown]
  - Diabetes mellitus [Unknown]
  - Agitation [Unknown]
  - Headache [Unknown]
  - Hypertension [Unknown]
  - Insomnia [Unknown]
  - Mental disorder [Unknown]
  - Malaise [Unknown]
  - Obsessive-compulsive disorder [Unknown]
  - Tachyphrenia [Unknown]
  - Anger [Unknown]
  - Depressed mood [Unknown]
  - Impaired driving ability [Unknown]
  - Feeling abnormal [Unknown]
  - Nasopharyngitis [Unknown]
  - Hallucination, visual [Unknown]
  - Restlessness [Unknown]
  - Blood glucose increased [Unknown]
  - Tremor [Unknown]
  - Dyskinesia [Unknown]
  - Intentional drug misuse [Unknown]
  - Drug dispensing error [Unknown]
  - Drug dose omission [Unknown]
